FAERS Safety Report 8833270 (Version 3)
Quarter: 2012Q4

REPORT INFORMATION
  Report Type: Report from Study
  Country: JP (occurrence: JP)
  Receive Date: 20121010
  Receipt Date: 20121127
  Transmission Date: 20130627
  Serious: Yes (Disabling, Other)
  Sender: FDA-Public Use
  Company Number: JP-JNJFOC-20121003978

PATIENT
  Sex: Female

DRUGS (6)
  1. REMINYL [Suspect]
     Indication: DEMENTIA ALZHEIMER^S TYPE
     Route: 048
     Dates: start: 20120105, end: 20120129
  2. REMINYL [Suspect]
     Indication: DEMENTIA ALZHEIMER^S TYPE
     Route: 048
     Dates: start: 20120130, end: 20120708
  3. REMINYL [Suspect]
     Indication: DEMENTIA ALZHEIMER^S TYPE
     Route: 048
     Dates: start: 20120709, end: 20120730
  4. DEPAKENE-R [Concomitant]
     Indication: EPILEPSY
     Route: 048
     Dates: end: 20120730
  5. PERYCIT [Concomitant]
     Indication: DYSLIPIDAEMIA
     Route: 048
     Dates: end: 20120730
  6. CRESTOR [Concomitant]
     Indication: DYSLIPIDAEMIA
     Route: 048
     Dates: end: 20120730

REACTIONS (1)
  - Spinal compression fracture [Recovered/Resolved with Sequelae]
